FAERS Safety Report 16349704 (Version 1)
Quarter: 2019Q2

REPORT INFORMATION
  Report Type: Spontaneous
  Country: ES (occurrence: ES)
  Receive Date: 20190523
  Receipt Date: 20190523
  Transmission Date: 20190711
  Serious: Yes (Other)
  Sender: FDA-Public Use
  Company Number: ES-ABBVIE-19P-144-2787916-00

PATIENT
  Age: 54 Year
  Sex: Male

DRUGS (5)
  1. ADALIMUMAB [Suspect]
     Active Substance: ADALIMUMAB
     Route: 058
  2. ADALIMUMAB [Suspect]
     Active Substance: ADALIMUMAB
     Route: 058
  3. ADALIMUMAB [Suspect]
     Active Substance: ADALIMUMAB
     Dosage: DAY 14
     Route: 058
  4. ISONIACIDE [Concomitant]
     Indication: TUBERCULIN TEST POSITIVE
  5. ADALIMUMAB [Suspect]
     Active Substance: ADALIMUMAB
     Indication: CROHN^S DISEASE
     Dosage: DAY 0
     Route: 058

REACTIONS (1)
  - Autoimmune hepatitis [Recovered/Resolved]
